FAERS Safety Report 4913675-5 (Version None)
Quarter: 2006Q1

REPORT INFORMATION
  Report Type: 
  Country: None (occurrence: None)
  Receive Date: 20060216
  Receipt Date: 20060206
  Transmission Date: 20060701
  Serious: Yes (Other)
  Sender: FDA-Public Use
  Company Number: US-JNJFOC-20051202707

PATIENT
  Age: 79 Year
  Sex: Female
  Weight: 49.9 kg

DRUGS (5)
  1. ULTRACET [Suspect]
     Indication: OSTEOPOROSIS
     Route: 048
  2. SYNTHROID [Concomitant]
     Indication: HYPOTHYROIDISM
  3. LISINOPRIL [Concomitant]
     Indication: HYPERTENSION
  4. LIPITOR [Concomitant]
  5. GLUCOSAMINE [Concomitant]

REACTIONS (1)
  - INTRAOCULAR PRESSURE INCREASED [None]
